FAERS Safety Report 10231135 (Version 2)
Quarter: 2014Q2

REPORT INFORMATION
  Report Type: Report from Study
  Country: AR (occurrence: AR)
  Receive Date: 20140611
  Receipt Date: 20140611
  Transmission Date: 20141212
  Serious: Yes (Hospitalization, Other)
  Sender: FDA-Public Use
  Company Number: AR-BRISTOL-MYERS SQUIBB COMPANY-20585113

PATIENT
  Age: 68 Year
  Sex: Female

DRUGS (1)
  1. YERVOY [Suspect]
     Dosage: 1DF:200MG/40MG?INTRPTD ON:28MAY14.
     Dates: start: 20140326

REACTIONS (2)
  - Adverse event [Recovered/Resolved]
  - Pyrexia [Recovering/Resolving]
